FAERS Safety Report 25622142 (Version 1)
Quarter: 2025Q3

REPORT INFORMATION
  Report Type: Spontaneous
  Country: US (occurrence: None)
  Receive Date: 20250729
  Receipt Date: 20250729
  Transmission Date: 20251020
  Serious: Yes (Other)
  Sender: FDA-CTU
  Company Number: None

PATIENT
  Age: 62 Year
  Sex: Female
  Weight: 79.38 kg

DRUGS (12)
  1. COSMETICS [Suspect]
     Active Substance: COSMETICS
     Indication: Skin wrinkling
  2. REFRESH OPTIVE MEGA-3 [Suspect]
     Active Substance: CARBOXYMETHYLCELLULOSE SODIUM\GLYCERIN\POLYSORBATE 80
     Indication: Dry eye
     Dates: start: 20250330, end: 20250603
  3. METHIMAZOLE [Concomitant]
     Active Substance: METHIMAZOLE
  4. AZELASTINE [Concomitant]
     Active Substance: AZELASTINE
  5. ALBUTEROL [Concomitant]
     Active Substance: ALBUTEROL
  6. LORATADINE [Concomitant]
     Active Substance: LORATADINE
  7. PSEUDOEPHEDRINE [Concomitant]
     Active Substance: PSEUDOEPHEDRINE
  8. MAGNESIUM CITRATE [Concomitant]
     Active Substance: MAGNESIUM CITRATE
  9. VITAMIN D3 [Concomitant]
     Active Substance: CHOLECALCIFEROL
  10. SELENIUM [Concomitant]
     Active Substance: SELENIUM
  11. Lactobacillus Gasseri [Concomitant]
  12. BENEFIBER [Concomitant]
     Active Substance: STARCH, WHEAT

REACTIONS (3)
  - Conjunctival oedema [None]
  - Hypersensitivity [None]
  - Eye haemorrhage [None]

NARRATIVE: CASE EVENT DATE: 20250401
